FAERS Safety Report 5279818-1 (Version None)
Quarter: 2007Q1

REPORT INFORMATION
  Report Type: 
  Country: None (occurrence: None)
  Receive Date: 20070327
  Receipt Date: 20070327
  Transmission Date: 20070707
  Serious: Yes (Hospitalization)
  Sender: FDA-Public Use
  Company Number: None

PATIENT
  Sex: Female
  Weight: 63.5036 kg

DRUGS (1)
  1. APRI BARR LAB. [Suspect]
     Indication: CONTRACEPTION
     Dosage: ONE 1 DAILY ORAL
     Route: 048

REACTIONS (2)
  - THROAT TIGHTNESS [None]
  - URTICARIA [None]
